FAERS Safety Report 6640178-2 (Version None)
Quarter: 2010Q1

REPORT INFORMATION
  Report Type: 
  Country: None (occurrence: None)
  Receive Date: 20100318
  Receipt Date: 20100309
  Transmission Date: 20100710
  Serious: Yes (Hospitalization)
  Sender: FDA-Public Use
  Company Number: EG-ROCHE-689790

PATIENT
  Sex: Female

DRUGS (1)
  1. HERCEPTIN [Suspect]
     Indication: BREAST CANCER
     Dosage: FREQUENCY: WEEKLY SCHEDULE, ROUTE: INFUSION.
     Route: 050
     Dates: start: 20091224

REACTIONS (1)
  - TRANSIENT ISCHAEMIC ATTACK [None]
